FAERS Safety Report 8567256 (Version 5)
Quarter: 2013Q3

REPORT INFORMATION
  Report Type: Spontaneous
  Country: US (occurrence: US)
  Receive Date: 20120517
  Receipt Date: 20130704
  Transmission Date: 20140515
  Serious: Yes (Other)
  Sender: FDA-Public Use
  Company Number: US-ASTRAZENECA-2011SE16603

PATIENT
  Age: 57 Year
  Sex: Female

DRUGS (3)
  1. SEROQUEL [Suspect]
     Indication: BIPOLAR DISORDER
     Route: 048
  2. SEROQUEL [Suspect]
     Indication: BIPOLAR DISORDER
     Route: 048
  3. LEVOTHYROXIN [Concomitant]

REACTIONS (17)
  - Road traffic accident [Unknown]
  - Concussion [Unknown]
  - Head injury [Unknown]
  - Fall [Unknown]
  - Visual impairment [Unknown]
  - Joint injury [Unknown]
  - Musculoskeletal disorder [Unknown]
  - Clavicle fracture [Unknown]
  - Loss of consciousness [Unknown]
  - Crush injury [Unknown]
  - Road traffic accident [Unknown]
  - Pain [Unknown]
  - Judgement impaired [Unknown]
  - Memory impairment [Unknown]
  - Balance disorder [Unknown]
  - Confusional state [Unknown]
  - Insomnia [Unknown]
